FAERS Safety Report 9431780 (Version 1)
Quarter: 2013Q3

REPORT INFORMATION
  Report Type: Report from Study
  Country: CA (occurrence: CA)
  Receive Date: 20130731
  Receipt Date: 20130731
  Transmission Date: 20140515
  Serious: Yes (Death)
  Sender: FDA-Public Use
  Company Number: CA-ROCHE-1255034

PATIENT
  Sex: Male
  Weight: 90.7 kg

DRUGS (6)
  1. XELODA [Suspect]
     Indication: ADENOCARCINOMA GASTRIC
     Dosage: UNKNOWN DOSE
     Route: 048
     Dates: start: 2013, end: 2013
  2. ASPIRIN [Concomitant]
     Route: 065
  3. CLOPIDOGREL [Concomitant]
  4. ROSUVASTATIN [Concomitant]
  5. RAMIPRIL [Concomitant]
  6. TECTA [Concomitant]

REACTIONS (2)
  - Renal failure [Fatal]
  - Cardiac arrest [Fatal]
